FAERS Safety Report 17259849 (Version 1)
Quarter: 2020Q1

REPORT INFORMATION
  Report Type: Report from Study
  Country: CN (occurrence: CN)
  Receive Date: 20200111
  Receipt Date: 20200111
  Transmission Date: 20200409
  Serious: Yes (Hospitalization)
  Sender: FDA-Public Use
  Company Number: CN-AMGEN-CHNCT2018187764

PATIENT
  Age: 61 Year
  Sex: Male

DRUGS (4)
  1. NIFEDIPINE. [Concomitant]
     Active Substance: NIFEDIPINE
     Indication: HYPERTENSION
     Dosage: 30 MILLIGRAM, QD
     Route: 048
  2. ALLOPURINOL 1 A PHARMA [Concomitant]
     Indication: HYPERURICAEMIA
     Dosage: 1 GRAM, QD
     Route: 048
  3. CINACALCET HCL [Suspect]
     Active Substance: CINACALCET HYDROCHLORIDE
     Indication: HYPERPARATHYROIDISM SECONDARY
     Dosage: 25 MILLIGRAM, QD
     Route: 048
     Dates: start: 20170803, end: 20180209
  4. BACLOFEN. [Concomitant]
     Active Substance: BACLOFEN
     Indication: PRODUCT USED FOR UNKNOWN INDICATION
     Dosage: UNK

REACTIONS (1)
  - Trance [Recovering/Resolving]

NARRATIVE: CASE EVENT DATE: 20180208
